FAERS Safety Report 8879866 (Version 2)
Quarter: 2012Q4

REPORT INFORMATION
  Report Type: 
  Country: US (occurrence: US)
  Receive Date: 20121101
  Receipt Date: 20121212
  Transmission Date: 20130627
  Serious: Yes (Hospitalization)
  Sender: FDA-Public Use
  Company Number: US-BAYER-2012-114288

PATIENT
  Age: 26 Year
  Sex: Female
  Weight: 105.22 kg

DRUGS (3)
  1. YAZ [Suspect]
     Dosage: UNK
     Dates: start: 200504, end: 200605
  2. XANAX [Concomitant]
     Indication: ANXIETY
     Dosage: UNK
     Dates: start: 2003
  3. ADIPEX [Concomitant]
     Indication: WEIGHT CONTROL
     Dosage: UNK
     Dates: start: 2003

REACTIONS (9)
  - Thrombosis [None]
  - Cholelithiasis [None]
  - Injury [None]
  - Back pain [None]
  - General physical health deterioration [None]
  - Anxiety [None]
  - Anhedonia [None]
  - Pain [None]
  - Emotional distress [None]
